FAERS Safety Report 4819151-2 (Version None)
Quarter: 2005Q4

REPORT INFORMATION
  Report Type: 
  Country: None (occurrence: None)
  Receive Date: 20051012
  Receipt Date: 20050826
  Transmission Date: 20060501
  Serious: No
  Sender: FDA-Public Use
  Company Number: A03200502772

PATIENT
  Sex: Male

DRUGS (1)
  1. UROXATRAL [Suspect]
     Dosage: ORAL
     Route: 048
     Dates: start: 20041206

REACTIONS (3)
  - DISTURBANCE IN ATTENTION [None]
  - PALPITATIONS [None]
  - VISUAL ACUITY REDUCED [None]
